FAERS Safety Report 7228472-8 (Version None)
Quarter: 2011Q1

REPORT INFORMATION
  Report Type: 
  Country: None (occurrence: None)
  Receive Date: 20110114
  Receipt Date: 20110110
  Transmission Date: 20110831
  Serious: Yes (Other)
  Sender: FDA-Public Use
  Company Number: DE-GENENTECH-312321

PATIENT

DRUGS (2)
  1. METALYSE [Suspect]
     Indication: PULMONARY EMBOLISM
  2. HEPARIN [Suspect]
     Indication: PULMONARY EMBOLISM

REACTIONS (1)
  - HAEMORRHAGE [None]
